FAERS Safety Report 5406185-2 (Version None)
Quarter: 2007Q3

REPORT INFORMATION
  Report Type: 
  Country: None (occurrence: None)
  Receive Date: 20070801
  Receipt Date: 20070726
  Transmission Date: 20080115
  Serious: Yes (Hospitalization)
  Sender: FDA-Public Use
  Company Number: T06-USA-04880-01

PATIENT
  Age: 85 Year
  Sex: Male
  Weight: 83.0083 kg

DRUGS (9)
  1. MEMANTINE HCL [Suspect]
     Indication: ATROPHY
     Dosage: 10 MG QD PO
     Route: 048
     Dates: start: 20061006, end: 20061026
  2. DONEPEZIL HCL [Concomitant]
  3. WARFARIN SODIUM [Concomitant]
  4. SOTALOL HYDROCHLORIDE [Concomitant]
  5. GLYBURIDE AND METFORMIN HCL [Concomitant]
  6. ACTOS [Concomitant]
  7. SIMVASTATIN [Concomitant]
  8. MULTI-VITAMIN [Concomitant]
  9. TERAZOSIN HCL [Concomitant]

REACTIONS (20)
  - ATRIAL FIBRILLATION [None]
  - BLOOD PRESSURE INCREASED [None]
  - BLOOD UREA INCREASED [None]
  - BRADYCARDIA [None]
  - DILATATION ATRIAL [None]
  - DIZZINESS [None]
  - FALL [None]
  - HAEMATOCRIT DECREASED [None]
  - HAEMOGLOBIN DECREASED [None]
  - INTERNATIONAL NORMALISED RATIO INCREASED [None]
  - MITRAL VALVE INCOMPETENCE [None]
  - PALPITATIONS [None]
  - PRESYNCOPE [None]
  - PROTHROMBIN TIME PROLONGED [None]
  - PULMONARY VALVE INCOMPETENCE [None]
  - RED BLOOD CELL COUNT DECREASED [None]
  - RESPIRATORY RATE INCREASED [None]
  - SICK SINUS SYNDROME [None]
  - TRICUSPID VALVE INCOMPETENCE [None]
  - VENTRICULAR HYPERTROPHY [None]
